FAERS Safety Report 9073490 (Version 1)
Quarter: 2013Q1

REPORT INFORMATION
  Report Type: Report from Study
  Country: US (occurrence: US)
  Receive Date: 20130129
  Receipt Date: 20130129
  Transmission Date: 20140127
  Serious: No
  Sender: FDA-Public Use
  Company Number: US-ABBOTT-12P-163-0921361-00

PATIENT
  Sex: Female
  Weight: 127.12 kg

DRUGS (16)
  1. HUMIRA 40 MG/0.8 ML PEN [Suspect]
     Indication: PSORIATIC ARTHROPATHY
     Dates: start: 201112, end: 201203
  2. CYMBALTA [Concomitant]
     Indication: DEPRESSION
  3. METFORMIN [Concomitant]
     Indication: DIABETES MELLITUS
  4. ADVAIR [Concomitant]
     Indication: ASTHMA
  5. SINGULAIR [Concomitant]
     Indication: HYPERSENSITIVITY
  6. SINGULAIR [Concomitant]
     Indication: ASTHMA
  7. ALBUTEROL [Concomitant]
     Indication: ASTHMA
  8. OMEPRAZOLE [Concomitant]
     Indication: GASTROOESOPHAGEAL REFLUX DISEASE
  9. METHOTREXATE [Concomitant]
     Indication: PSORIATIC ARTHROPATHY
  10. FOLIC ACID [Concomitant]
     Indication: PSORIATIC ARTHROPATHY
  11. HYDROCODONE/ACETAMINOPHEN [Concomitant]
     Indication: PAIN
  12. IRON [Concomitant]
     Indication: MINERAL SUPPLEMENTATION
  13. LISINOPRIL [Concomitant]
     Indication: HYPERTENSION
  14. ZOLPIDEM [Concomitant]
     Indication: INSOMNIA
  15. DITROPAN [Concomitant]
     Indication: STRESS URINARY INCONTINENCE
  16. SIMVASTIN [Concomitant]
     Indication: BLOOD CHOLESTEROL INCREASED

REACTIONS (5)
  - Inappropriate schedule of drug administration [Not Recovered/Not Resolved]
  - Rash [Not Recovered/Not Resolved]
  - Dyspnoea [Recovered/Resolved]
  - Headache [Not Recovered/Not Resolved]
  - Rash [Not Recovered/Not Resolved]
